FAERS Safety Report 6201521-1 (Version None)
Quarter: 2009Q2

REPORT INFORMATION
  Report Type: 
  Country: None (occurrence: None)
  Receive Date: 20090521
  Receipt Date: 20090521
  Transmission Date: 20091009
  Serious: Yes (Hospitalization)
  Sender: FDA-Public Use
  Company Number: None

PATIENT
  Age: 69 Year
  Sex: Female

DRUGS (1)
  1. DILANTIN [Suspect]
     Indication: CONVULSION
     Dosage: 500/DAY GIVEN TID PO
     Route: 048
     Dates: start: 20070301

REACTIONS (2)
  - ANTICONVULSANT DRUG LEVEL ABOVE THERAPEUTIC [None]
  - LETHARGY [None]
